FAERS Safety Report 6874119-X (Version None)
Quarter: 2010Q3

REPORT INFORMATION
  Report Type: 
  Country: None (occurrence: None)
  Receive Date: 20100722
  Receipt Date: 20100707
  Transmission Date: 20110219
  Serious: Yes (Life-Threatening, Hospitalization, Other)
  Sender: FDA-Public Use
  Company Number: 1000014445

PATIENT
  Age: 47 Year
  Sex: Female
  Weight: 50 kg

DRUGS (3)
  1. ESCITALOPRAM OXALATE [Suspect]
     Indication: DEPRESSION
     Dosage: 10 MG (10 MG, 1 IN 1 D)
  2. MIRTAZAPIN [Suspect]
     Indication: DEPRESSION
     Dosage: 15 MG (15 MG, 1 IN 1 D)
  3. ZOPICLON [Suspect]
     Indication: SLEEP DISORDER
     Dosage: 7.5 MG (7.5 MG, 1 IN 1 D)

REACTIONS (17)
  - BRONCHITIS [None]
  - EMPYEMA [None]
  - FIBRIN D DIMER INCREASED [None]
  - GENERAL PHYSICAL HEALTH DETERIORATION [None]
  - HAEMOPHILUS INFECTION [None]
  - LYMPHOCYTE PERCENTAGE INCREASED [None]
  - NEUTROPHIL PERCENTAGE INCREASED [None]
  - NO THERAPEUTIC RESPONSE [None]
  - NORMOCHROMIC NORMOCYTIC ANAEMIA [None]
  - NUTRITIONAL CONDITION ABNORMAL [None]
  - PLATELET COUNT INCREASED [None]
  - PLEURAL ADHESION [None]
  - PLEURAL EFFUSION [None]
  - PNEUMONIA [None]
  - STREPTOCOCCAL INFECTION [None]
  - TACHYCARDIA [None]
  - WHITE BLOOD CELL COUNT INCREASED [None]
